FAERS Safety Report 26149569 (Version 1)
Quarter: 2025Q4

REPORT INFORMATION
  Report Type: Report from Study
  Country: ZA (occurrence: ZA)
  Receive Date: 20251212
  Receipt Date: 20251212
  Transmission Date: 20260118
  Serious: Yes (Other)
  Sender: ROCHE
  Company Number: ZA-ROCHE-10000066242

PATIENT
  Sex: Male

DRUGS (3)
  1. VABYSMO [Suspect]
     Active Substance: FARICIMAB-SVOA
     Indication: Diabetic retinal oedema
     Dosage: 2ND INJ - 26 JUL 2024?3RD INJ - 23 AUG 2024?4TH INJ - 20 SEP 2024?5TH INJ - 14 NOV 2024 [ 8 WEEKS APART
     Dates: start: 20240627
  2. VABYSMO [Suspect]
     Active Substance: FARICIMAB-SVOA
     Indication: Macular degeneration
  3. AVASTIN [Concomitant]
     Active Substance: BEVACIZUMAB
     Indication: Diabetic retinal oedema
     Dosage: DATE OF TREATMENT: 16-MAY-2024

REACTIONS (4)
  - Optical coherence tomography abnormal [Unknown]
  - Off label use [Unknown]
  - Visual acuity tests abnormal [Unknown]
  - Retinal thickening [Unknown]
